FAERS Safety Report 7645899-0 (Version None)
Quarter: 2011Q3

REPORT INFORMATION
  Report Type: 
  Country: None (occurrence: None)
  Receive Date: 20110729
  Receipt Date: 20110725
  Transmission Date: 20111222
  Serious: Yes (Other)
  Sender: FDA-Public Use
  Company Number: US-BAYER-2011-047163

PATIENT
  Sex: Female

DRUGS (9)
  1. TRIAD [Suspect]
  2. TRAZODONE HCL [Concomitant]
     Dosage: 200 MG, QD
  3. PROVIGIL [Concomitant]
     Dosage: 200 MG, BID
  4. BACLOFEN [Concomitant]
     Dosage: 10 MG, TID
  5. CLONAZEPAM [Concomitant]
     Dosage: 0.5 MG, BID
  6. VISTARIL [Concomitant]
     Dosage: UNK UNK, TID
  7. BETASERON [Suspect]
     Indication: MULTIPLE SCLEROSIS
     Dosage: 8 MIU, QOD
     Dates: start: 20051220, end: 20110519
  8. TOPAMAX [Concomitant]
     Dosage: 2 MG, BID
  9. MULTI-VITAMIN [Suspect]
     Dosage: UNK

REACTIONS (7)
  - UNEVALUABLE EVENT [None]
  - FATIGUE [None]
  - INJECTION SITE ULCER [None]
  - PURULENT DISCHARGE [None]
  - INJECTION SITE DISCOLOURATION [None]
  - PAIN IN EXTREMITY [None]
  - SKIN DISCOLOURATION [None]
